FAERS Safety Report 9300208 (Version 1)
Quarter: 2013Q2

REPORT INFORMATION
  Report Type: Report from Study
  Country: AR (occurrence: AR)
  Receive Date: 20130521
  Receipt Date: 20130521
  Transmission Date: 20140414
  Serious: Yes (Other)
  Sender: FDA-Public Use
  Company Number: PHHY2013AR049889

PATIENT
  Sex: Female

DRUGS (1)
  1. DIOVAN [Suspect]
     Indication: HYPERTENSION
     Dosage: 160 MG,
     Route: 048
     Dates: start: 2010, end: 2011

REACTIONS (2)
  - Tendon rupture [Not Recovered/Not Resolved]
  - Fall [Not Recovered/Not Resolved]
